FAERS Safety Report 7905898-8 (Version None)
Quarter: 2011Q4

REPORT INFORMATION
  Report Type: 
  Country: None (occurrence: None)
  Receive Date: 20111110
  Receipt Date: 20111102
  Transmission Date: 20120403
  Serious: Yes (Other)
  Sender: FDA-Public Use
  Company Number: US-US-EMD SERONO, INC.-7093439

PATIENT
  Sex: Female
  Weight: 64 kg

DRUGS (1)
  1. REBIF [Suspect]
     Indication: MULTIPLE SCLEROSIS
     Dates: start: 20051001, end: 20111031

REACTIONS (4)
  - OPTIC NEURITIS [None]
  - ASTHENIA [None]
  - INFLUENZA LIKE ILLNESS [None]
  - NEUTRALISING ANTIBODIES [None]
